FAERS Safety Report 23511720 (Version 1)
Quarter: 2024Q1

REPORT INFORMATION
  Report Type: Spontaneous
  Country: CN (occurrence: CN)
  Receive Date: 20240212
  Receipt Date: 20240212
  Transmission Date: 20240410
  Serious: Yes (Other)
  Sender: FDA-Public Use
  Company Number: CN-002147023-NVSC2024CN026532

PATIENT
  Age: 33 Year
  Sex: Male
  Weight: 83 kg

DRUGS (1)
  1. BRINZOLAMIDE [Suspect]
     Active Substance: BRINZOLAMIDE
     Indication: Ocular hyperaemia
     Dosage: 0.050 ML, TID
     Route: 047
     Dates: start: 20240122, end: 20240122

REACTIONS (7)
  - Anterior chamber opacity [Unknown]
  - Ocular hyperaemia [Recovering/Resolving]
  - Pupillary reflex impaired [Unknown]
  - Corneal opacity [Unknown]
  - Eye oedema [Unknown]
  - Thoracic outlet syndrome [Unknown]
  - Conjunctival hyperaemia [Recovering/Resolving]

NARRATIVE: CASE EVENT DATE: 20240122
